FAERS Safety Report 7908833-1 (Version None)
Quarter: 2011Q4

REPORT INFORMATION
  Report Type: 
  Country: None (occurrence: None)
  Receive Date: 20111111
  Receipt Date: 20111104
  Transmission Date: 20120403
  Serious: Yes (Hospitalization)
  Sender: FDA-Public Use
  Company Number: DK-B.I. PHARMACEUTICALS,INC./RIDGEFIELD-2011-EU-00136EU

PATIENT
  Sex: Male
  Weight: 68 kg

DRUGS (5)
  1. BETA ADRENERGICS (LONG ACTING INHALED) FORMOTEROL [Concomitant]
  2. ANTICHOLINERGIC (LONG ACTING/INHALED) [Concomitant]
  3. STEROIDS (ORAL/IV/IM) [Concomitant]
  4. BETA ADRENERGICS (SHORT ACTING/INHALED) [Concomitant]
  5. TIOPRONIN [Suspect]
     Indication: CHRONIC OBSTRUCTIVE PULMONARY DISEASE
     Dosage: 2.5 MCG
     Route: 055
     Dates: start: 20101125

REACTIONS (2)
  - MYOCARDIAL INFARCTION [None]
  - SYNCOPE [None]
